FAERS Safety Report 13703354 (Version 2)
Quarter: 2017Q3

REPORT INFORMATION
  Report Type: Spontaneous
  Country: US (occurrence: US)
  Receive Date: 20170629
  Receipt Date: 20170823
  Transmission Date: 20171127
  Serious: No
  Sender: FDA-Public Use
  Company Number: GXBR2017US001996

PATIENT
  Age: 31 Year
  Sex: Male
  Weight: 58.96 kg

DRUGS (1)
  1. LORATADINE TABLETS [Suspect]
     Active Substance: LORATADINE
     Indication: HYPERSENSITIVITY
     Dosage: 1 DF, QD
     Route: 065
     Dates: start: 20170429, end: 20170607

REACTIONS (6)
  - Abdominal discomfort [Recovered/Resolved]
  - Vomiting [Unknown]
  - Disturbance in attention [Recovered/Resolved]
  - Nausea [Unknown]
  - Euphoric mood [Unknown]
  - Diarrhoea [Unknown]

NARRATIVE: CASE EVENT DATE: 20170606
